FAERS Safety Report 9611581 (Version 2)
Quarter: 2013Q4

REPORT INFORMATION
  Report Type: Report from Study
  Country: BR (occurrence: BR)
  Receive Date: 20131010
  Receipt Date: 20131010
  Transmission Date: 20140711
  Serious: Yes (Other)
  Sender: FDA-Public Use
  Company Number: PHHY2013BR023104

PATIENT
  Sex: Female
  Weight: 53 kg

DRUGS (9)
  1. SANDOSTATIN LAR [Suspect]
     Indication: ACROMEGALY
     Dosage: 30 MG, 1 APPLICATION MONTHLY
     Route: 030
     Dates: start: 2011
  2. PURAN T4 [Concomitant]
     Dosage: 80 MG, UNK
  3. METFORMIN [Concomitant]
     Indication: DIABETES MELLITUS
     Dosage: 2 DF, DAILY
     Route: 048
  4. CAPTOPRIL [Concomitant]
     Indication: HYPERTENSION
     Dosage: 2 DF, DAILY
     Route: 048
  5. CAPTOPRIL [Concomitant]
     Dosage: 3 DF, DAILY
     Route: 048
     Dates: end: 20130926
  6. HYDROCHLOROTHIAZIDE [Concomitant]
     Indication: HYPERTENSION
     Dosage: 1 DF, DAILY
     Route: 048
  7. NIFEDIPINE [Concomitant]
     Indication: HYPERTENSION
     Dosage: 2 DF, DAILY
     Route: 048
  8. NOVOLIN NPH [Concomitant]
     Indication: DIABETES MELLITUS
     Dosage: 20 U, DAILY
     Route: 058
  9. ACETYLSALICYLIC ACID [Concomitant]
     Dosage: UNK UKN, UNK

REACTIONS (14)
  - Syncope [Recovered/Resolved]
  - Fluid retention [Recovered/Resolved]
  - Somnolence [Recovered/Resolved]
  - Hypoglycaemia [Unknown]
  - Visual impairment [Unknown]
  - Nervousness [Unknown]
  - Gait disturbance [Recovering/Resolving]
  - Blood pressure abnormal [Unknown]
  - Cough [Recovered/Resolved]
  - Choking [Unknown]
  - Weight fluctuation [Unknown]
  - Pain in extremity [Recovering/Resolving]
  - Fall [Unknown]
  - Injection site pain [Recovering/Resolving]
